FAERS Safety Report 5742300-9 (Version None)
Quarter: 2008Q2

REPORT INFORMATION
  Report Type: 
  Country: None (occurrence: None)
  Receive Date: 20080514
  Receipt Date: 20080514
  Transmission Date: 20081010
  Serious: No
  Sender: FDA-Public Use
  Company Number: None

PATIENT
  Age: 65 Year
  Sex: Male
  Weight: 81.6475 kg

DRUGS (1)
  1. DIGITEK 250 MCG BERTEK PHARMACY [Suspect]
     Indication: HEART RATE
     Dosage: 1 TAB ONCE DAILY PO
     Route: 048
     Dates: start: 20071109, end: 20071122

REACTIONS (10)
  - ASTHENIA [None]
  - FATIGUE [None]
  - HEADACHE [None]
  - HEART RATE INCREASED [None]
  - HEART RATE IRREGULAR [None]
  - MALAISE [None]
  - NAUSEA [None]
  - RASH [None]
  - SCAR [None]
  - SLEEP DISORDER [None]
